FAERS Safety Report 21812784 (Version 2)
Quarter: 2023Q1

REPORT INFORMATION
  Report Type: Spontaneous
  Country: ES (occurrence: ES)
  Receive Date: 20230103
  Receipt Date: 20230127
  Transmission Date: 20230418
  Serious: Yes (Hospitalization, Other)
  Sender: FDA-Public Use
  Company Number: ES-ELI_LILLY_AND_COMPANY-ES202212013117

PATIENT
  Age: 51 Year
  Sex: Female

DRUGS (2)
  1. TALTZ [Suspect]
     Active Substance: IXEKIZUMAB
     Indication: Psoriasis
     Dosage: UNK, UNKNOWN
     Route: 058
     Dates: start: 20221026
  2. FLUOXETINE [Concomitant]
     Active Substance: FLUOXETINE HYDROCHLORIDE
     Indication: Product used for unknown indication

REACTIONS (5)
  - Ischaemic skin ulcer [Unknown]
  - Vascular occlusion [Recovering/Resolving]
  - Thrombosis [Recovering/Resolving]
  - Raynaud^s phenomenon [Unknown]
  - Arthritis [Unknown]

NARRATIVE: CASE EVENT DATE: 20221123
